FAERS Safety Report 17400569 (Version 1)
Quarter: 2020Q1

REPORT INFORMATION
  Report Type: Spontaneous
  Country: US (occurrence: US)
  Receive Date: 20200126
  Receipt Date: 20200126
  Transmission Date: 20200409
  Serious: No
  Sender: FDA-Public Use
  Company Number: None

PATIENT
  Age: 77 Year
  Sex: Male

DRUGS (1)
  1. DOXYCYCLINE (DOXYCYCLINE HYCLATE 100MG CAP) [Suspect]
     Active Substance: DOXYCYCLINE HYCLATE
     Indication: SKIN INFECTION
     Route: 048
     Dates: start: 20191205, end: 20191210

REACTIONS (2)
  - Pain [None]
  - Movement disorder [None]

NARRATIVE: CASE EVENT DATE: 20191210
